FAERS Safety Report 6213996-2 (Version None)
Quarter: 2009Q2

REPORT INFORMATION
  Report Type: 
  Country: None (occurrence: None)
  Receive Date: 20090604
  Receipt Date: 20090526
  Transmission Date: 20091009
  Serious: Yes (Other)
  Sender: FDA-Public Use
  Company Number: DE-JNJFOC-20090306674

PATIENT
  Age: 33 Year
  Sex: Male

DRUGS (2)
  1. REMICADE [Suspect]
     Indication: COLITIS ULCERATIVE
     Route: 042
  2. AZATHIOPRINE [Concomitant]
     Indication: COLITIS ULCERATIVE

REACTIONS (1)
  - ALVEOLITIS [None]
